FAERS Safety Report 9042599 (Version 1)
Quarter: 2013Q1

REPORT INFORMATION
  Report Type: Report from Study
  Country: US (occurrence: US)
  Receive Date: 20130129
  Receipt Date: 20130129
  Transmission Date: 20140127
  Serious: No
  Sender: FDA-Public Use
  Company Number: US-ABBOTT-12P-163-0905584-00

PATIENT
  Age: 64 Year
  Sex: Female

DRUGS (9)
  1. HUMIRA 40 MG/0.8 ML PEN [Suspect]
     Indication: CROHN^S DISEASE
     Dates: start: 20111214
  2. PREDNISONE [Concomitant]
     Indication: CROHN^S DISEASE
     Dosage: 7.5 MG DAILY
  3. PENTASA [Concomitant]
     Indication: CROHN^S DISEASE
     Dosage: 2000 MG DAILY
  4. SPIRONOLACTONE [Concomitant]
     Indication: BLOOD PRESSURE
     Dosage: 50 MG DAILY
  5. CENTRUM SILVER [Concomitant]
     Indication: PRODUCT USED FOR UNKNOWN INDICATION
     Dosage: DAILY
  6. CALCIUM [Concomitant]
     Indication: PRODUCT USED FOR UNKNOWN INDICATION
     Dosage: DAILY
  7. FISH OIL [Concomitant]
     Indication: PRODUCT USED FOR UNKNOWN INDICATION
     Dosage: DAILY
  8. ENZYME DIGESTIVE AID [Concomitant]
     Indication: PRODUCT USED FOR UNKNOWN INDICATION
     Dosage: PRIOR TO EACH MEAL
  9. ZEGERID [Concomitant]
     Indication: OESOPHAGEAL DISORDER
     Dosage: DAILY

REACTIONS (6)
  - Rib fracture [Unknown]
  - Dyspnoea [Unknown]
  - Back pain [Unknown]
  - Insomnia [Unknown]
  - Muscle strain [Unknown]
  - Injection site pain [Unknown]
